FAERS Safety Report 19055666 (Version 1)
Quarter: 2021Q1

REPORT INFORMATION
  Report Type: Spontaneous
  Country: FR (occurrence: FR)
  Receive Date: 20210325
  Receipt Date: 20210325
  Transmission Date: 20210420
  Serious: Yes (Hospitalization)
  Sender: FDA-Public Use
  Company Number: FR-ACCORD-220694

PATIENT
  Age: 72 Year
  Sex: Male
  Weight: 69 kg

DRUGS (13)
  1. ALLOPURINOL. [Concomitant]
     Active Substance: ALLOPURINOL
     Dosage: SEE COMMENT
  2. BISOPROLOL [Concomitant]
     Active Substance: BISOPROLOL
     Dosage: SEE COMMENT
     Route: 048
  3. SPIRONOLACTONE. [Concomitant]
     Active Substance: SPIRONOLACTONE
     Dosage: SEE COMMENT
     Route: 048
  4. FUROSEMIDE. [Concomitant]
     Active Substance: FUROSEMIDE
     Dosage: SEE COMMENT
     Route: 048
  5. CARBOPLATIN. [Suspect]
     Active Substance: CARBOPLATIN
     Indication: ADENOCARCINOMA
     Dosage: SEE COMMENT
     Route: 042
     Dates: start: 20201201, end: 20201201
  6. PLAVIX [Concomitant]
     Active Substance: CLOPIDOGREL BISULFATE
     Dosage: STRENGTH: 75 MG
     Route: 048
  7. ALIMTA [Suspect]
     Active Substance: PEMETREXED DISODIUM
     Indication: ADENOCARCINOMA
     Dosage: SEE COMMENT
     Route: 042
     Dates: start: 20201201, end: 20201230
  8. ZOPHREN [Suspect]
     Active Substance: ONDANSETRON
     Indication: ADENOCARCINOMA
     Dosage: STRENGTH: 8 MG
     Route: 048
     Dates: start: 20201201, end: 20201230
  9. KEYTRUDA [Suspect]
     Active Substance: PEMBROLIZUMAB
     Indication: ADENOCARCINOMA
     Dosage: SEE COMMENT
     Route: 042
     Dates: start: 20201201, end: 20201230
  10. FOLIC ACID. [Concomitant]
     Active Substance: FOLIC ACID
     Indication: ADENOCARCINOMA
     Dosage: SEE COMMENT
     Route: 048
     Dates: start: 20201020
  11. ENALAPRIL [Concomitant]
     Active Substance: ENALAPRIL
     Route: 048
  12. SOLU?MEDROL [Concomitant]
     Active Substance: METHYLPREDNISOLONE SODIUM SUCCINATE
     Indication: ADENOCARCINOMA
     Dosage: SEE COMMENT
     Route: 048
     Dates: start: 20201201, end: 20201230
  13. ROSUVASTATIN/ROSUVASTATIN CALCIUM [Concomitant]
     Active Substance: ROSUVASTATIN CALCIUM
     Dosage: SEE COMMENT
     Route: 048

REACTIONS (1)
  - Toxic epidermal necrolysis [Recovering/Resolving]

NARRATIVE: CASE EVENT DATE: 20201203
